FAERS Safety Report 9312422 (Version 1)
Quarter: 2013Q2

REPORT INFORMATION
  Report Type: Spontaneous
  Country: US (occurrence: US)
  Receive Date: 20130528
  Receipt Date: 20130528
  Transmission Date: 20140414
  Serious: No
  Sender: FDA-Public Use
  Company Number: US-BRISTOL-MYERS SQUIBB COMPANY-17388786

PATIENT
  Age: 60 Year
  Sex: Female
  Weight: 74.37 kg

DRUGS (4)
  1. KOMBIGLYZE XR [Suspect]
     Indication: TYPE 2 DIABETES MELLITUS
     Dosage: 1DF:KOMBIGLYZE XR 2.5/1000 MG
  2. CRESTOR [Concomitant]
  3. LISINOPRIL [Concomitant]
  4. VITAMIN D [Concomitant]

REACTIONS (2)
  - Diarrhoea [Not Recovered/Not Resolved]
  - Abdominal discomfort [Unknown]
